FAERS Safety Report 7619867-9 (Version None)
Quarter: 2011Q3

REPORT INFORMATION
  Report Type: 
  Country: None (occurrence: None)
  Receive Date: 20110719
  Receipt Date: 20110706
  Transmission Date: 20111222
  Serious: Yes (Other)
  Sender: FDA-Public Use
  Company Number: US-AMGEN-USASP2011028986

PATIENT
  Age: 54 Year
  Sex: Female

DRUGS (10)
  1. EPOGEN [Suspect]
     Indication: ANAEMIA
  2. LEVOCETIRIZINE DIHYDROCHLORIDE [Concomitant]
     Dosage: 5 UNK, UNK
  3. TEMAZEPAM [Concomitant]
     Dosage: 30 MG, UNK
  4. CRESTOR [Concomitant]
     Dosage: 10 MG, UNK
  5. PLAVIX [Concomitant]
     Dosage: 75 MG, UNK
  6. METOCLOPRAMIDE [Concomitant]
     Dosage: 5 UNK, UNK
  7. NIFEDIPINE [Concomitant]
     Dosage: 90 MG, UNK
  8. RENAGEL [Concomitant]
     Dosage: 800 MG, UNK
  9. WHOLE BLOOD [Concomitant]
  10. NEPHRO VITE RX [Concomitant]

REACTIONS (7)
  - DRUG INEFFECTIVE [None]
  - CARDIOMEGALY [None]
  - CONGESTIVE CARDIOMYOPATHY [None]
  - CEREBRAL VENTRICLE DILATATION [None]
  - THERAPEUTIC RESPONSE DECREASED [None]
  - MENTAL STATUS CHANGES [None]
  - CEREBRAL SMALL VESSEL ISCHAEMIC DISEASE [None]
